FAERS Safety Report 7110761-9 (Version None)
Quarter: 2010Q4

REPORT INFORMATION
  Report Type: 
  Country: None (occurrence: None)
  Receive Date: 20101118
  Receipt Date: 20101109
  Transmission Date: 20110411
  Serious: Yes (Hospitalization)
  Sender: FDA-Public Use
  Company Number: B0684543A

PATIENT
  Sex: Female
  Weight: 77 kg

DRUGS (12)
  1. MELPHALAN HYDROCHLORIDE [Suspect]
     Indication: MULTIPLE MYELOMA
     Dosage: 20MG PER DAY
     Route: 065
     Dates: start: 20091022
  2. THALIDOMIDE [Suspect]
     Indication: MULTIPLE MYELOMA
     Dosage: 200MG PER DAY
     Route: 048
     Dates: start: 20091022
  3. PREDNISOLONE [Suspect]
     Indication: MULTIPLE MYELOMA
     Dosage: 150MG PER DAY
     Route: 065
     Dates: start: 20091022
  4. KARDEGIC [Concomitant]
     Indication: PROPHYLAXIS
  5. CELIPROLOL [Concomitant]
     Dates: end: 20100901
  6. LISINOPRIL [Concomitant]
  7. PRAVASTATIN [Concomitant]
  8. XANAX [Concomitant]
  9. TAVANIC [Concomitant]
  10. OROKEN [Concomitant]
  11. MOTILIUM [Concomitant]
  12. OXYCONTIN [Concomitant]

REACTIONS (7)
  - ATRIOVENTRICULAR BLOCK FIRST DEGREE [None]
  - BRONCHITIS [None]
  - BUNDLE BRANCH BLOCK RIGHT [None]
  - MALAISE [None]
  - NAUSEA [None]
  - OXYGEN SATURATION DECREASED [None]
  - SYNCOPE [None]
